FAERS Safety Report 25141113 (Version 2)
Quarter: 2025Q2

REPORT INFORMATION
  Report Type: Report from Study
  Country: CO (occurrence: CO)
  Receive Date: 20250331
  Receipt Date: 20250603
  Transmission Date: 20250716
  Serious: Yes (Hospitalization, Other)
  Sender: AMGEN
  Company Number: CO-AMGEN-COLSL2024141611

PATIENT
  Age: 45 Year
  Sex: Female

DRUGS (5)
  1. VECTIBIX [Suspect]
     Active Substance: PANITUMUMAB
     Indication: Colorectal cancer metastatic
     Dosage: 350 MILLIGRAM, Q2WK
     Route: 042
     Dates: start: 20240527
  2. VECTIBIX [Suspect]
     Active Substance: PANITUMUMAB
     Dosage: 440 MILLIGRAM, Q2WK/ BIWEEKLY
     Route: 042
     Dates: start: 2024
  3. VECTIBIX [Suspect]
     Active Substance: PANITUMUMAB
     Dosage: 350 MILLIGRAM, Q2WK/ BIWEEKLY
     Route: 042
     Dates: start: 2024, end: 20241112
  4. VECTIBIX [Suspect]
     Active Substance: PANITUMUMAB
     Dosage: 350 MILLIGRAM, Q2WK/ BIWEEKLY
     Route: 042
     Dates: start: 20250212, end: 2025
  5. VECTIBIX [Suspect]
     Active Substance: PANITUMUMAB
     Dosage: 270 MILLIGRAM, Q2WK
     Route: 042
     Dates: start: 2025, end: 20250506

REACTIONS (15)
  - Abdominal distension [Recovering/Resolving]
  - Abdominal pain [Recovering/Resolving]
  - Liver disorder [Not Recovered/Not Resolved]
  - Secretion discharge [Not Recovered/Not Resolved]
  - Papule [Not Recovered/Not Resolved]
  - Skin burning sensation [Not Recovered/Not Resolved]
  - Skin lesion [Not Recovered/Not Resolved]
  - Hypersensitivity [Unknown]
  - Eye irritation [Not Recovered/Not Resolved]
  - Eye pruritus [Not Recovered/Not Resolved]
  - Acne [Unknown]
  - Dry eye [Not Recovered/Not Resolved]
  - Ocular hyperaemia [Not Recovered/Not Resolved]
  - Rash [Not Recovered/Not Resolved]
  - Dry skin [Not Recovered/Not Resolved]

NARRATIVE: CASE EVENT DATE: 20240101
